FAERS Safety Report 5879194-7 (Version None)
Quarter: 2008Q3

REPORT INFORMATION
  Report Type: 
  Country: None (occurrence: None)
  Receive Date: 20080911
  Receipt Date: 20080911
  Transmission Date: 20090109
  Serious: No
  Sender: FDA-Public Use
  Company Number: None

PATIENT
  Age: 43 Year
  Sex: Female
  Weight: 68.4932 kg

DRUGS (1)
  1. ZYRTEC [Suspect]
     Indication: HYPERSENSITIVITY
     Dosage: 10 MG 1 X DAILY PO
     Route: 048
     Dates: start: 20041001, end: 20080908

REACTIONS (2)
  - DRUG WITHDRAWAL SYNDROME [None]
  - PRURITUS [None]
